FAERS Safety Report 19406864 (Version 2)
Quarter: 2021Q3

REPORT INFORMATION
  Report Type: Other
  Country: US (occurrence: US)
  Receive Date: 20210611
  Receipt Date: 20210706
  Transmission Date: 20211014
  Serious: Yes (Hospitalization, Other)
  Sender: FDA-Public Use
  Company Number: US-COVIS PHARMA GMBH-2021COV22422

PATIENT
  Age: 0 Day
  Sex: Male
  Weight: 1.18 kg

DRUGS (1)
  1. MAKENA [Suspect]
     Active Substance: HYDROXYPROGESTERONE CAPROATE
     Indication: FOETAL EXPOSURE DURING PREGNANCY
     Dosage: 275MG/1.1ML
     Route: 064
     Dates: start: 20201229, end: 20210312

REACTIONS (2)
  - Foetal heart rate deceleration abnormality [Unknown]
  - Premature baby [Unknown]

NARRATIVE: CASE EVENT DATE: 20210313
